FAERS Safety Report 15674153 (Version 1)
Quarter: 2018Q4

REPORT INFORMATION
  Report Type: Spontaneous
  Country: FR (occurrence: FR)
  Receive Date: 20181130
  Receipt Date: 20181130
  Transmission Date: 20190205
  Serious: Yes (Hospitalization)
  Sender: FDA-Public Use
  Company Number: FR-B.I. PHARMACEUTICALS,INC./RIDGEFIELD-2018-12-003832

PATIENT
  Age: 89 Year
  Sex: Male

DRUGS (5)
  1. CODEINE [Suspect]
     Active Substance: CODEINE
     Indication: PAIN
     Dosage: NON RENSEIGNEE
     Route: 048
  2. ZAMUDOL [Suspect]
     Active Substance: TRAMADOL HYDROCHLORIDE
     Indication: PAIN
     Dosage: 1-0-1
     Route: 048
  3. PRIMALAN [Suspect]
     Active Substance: MEQUITAZINE
     Indication: PRODUCT USED FOR UNKNOWN INDICATION
     Dosage: 0-0-1
     Route: 048
     Dates: end: 20170819
  4. LYRICA [Suspect]
     Active Substance: PREGABALIN
     Indication: PAIN
     Dosage: 0-0-1
     Route: 048
  5. SIFROL [Suspect]
     Active Substance: PRAMIPEXOLE
     Indication: PARKINSON^S DISEASE
     Dosage: LE MATIN
     Route: 048

REACTIONS (2)
  - Subileus [Recovered/Resolved]
  - Constipation [Recovered/Resolved]

NARRATIVE: CASE EVENT DATE: 20170813
